FAERS Safety Report 7477802-0 (Version None)
Quarter: 2011Q2

REPORT INFORMATION
  Report Type: 
  Country: None (occurrence: None)
  Receive Date: 20110511
  Receipt Date: 20110511
  Transmission Date: 20111010
  Serious: Yes (Hospitalization, Other)
  Sender: FDA-Public Use
  Company Number: None

PATIENT
  Sex: Female
  Weight: 100.2 kg

DRUGS (10)
  1. MIRALAX [Concomitant]
  2. TIVOZANIB [Suspect]
     Indication: COLORECTAL CANCER
     Dosage: 1.0 MG PO QD
     Route: 048
     Dates: start: 20110415
  3. LANTUS [Concomitant]
  4. LIPITOR [Concomitant]
  5. LOTREL [Concomitant]
  6. AMARYL [Concomitant]
  7. SYNTHROID [Concomitant]
  8. EVEROLIMUS [Suspect]
     Indication: COLORECTAL CANCER
     Dosage: 10 MG PO QD
     Route: 048
     Dates: start: 20110415, end: 20110429
  9. DEODORIZED TINCTURE OF OPIUM [Concomitant]
  10. OXYCODONE HCL [Concomitant]

REACTIONS (2)
  - MENTAL STATUS CHANGES [None]
  - AMMONIA INCREASED [None]
